FAERS Safety Report 13297760 (Version 1)
Quarter: 2017Q1

REPORT INFORMATION
  Report Type: Spontaneous
  Country: US (occurrence: US)
  Receive Date: 20170306
  Receipt Date: 20170306
  Transmission Date: 20170428
  Serious: No
  Sender: FDA-Public Use
  Company Number: US-DEPOMED, INC.-US-2016DEP008566

PATIENT

DRUGS (7)
  1. GRALISE [Suspect]
     Active Substance: GABAPENTIN
     Indication: NEURALGIA
     Dosage: 300 MG, QD, TITRATED UP TO 1200 MG, QD
     Route: 048
     Dates: start: 20160317
  2. GABAPENTIN. [Concomitant]
     Active Substance: GABAPENTIN
     Indication: NEURALGIA
     Dosage: 300 MG, TID
     Route: 048
     Dates: start: 2015, end: 20160316
  3. ASPIRIN                            /00002701/ [Concomitant]
     Active Substance: ASPIRIN
     Indication: CEREBROVASCULAR ACCIDENT
     Dosage: 325 MG, QD
     Route: 048
     Dates: start: 201601
  4. GRALISE [Suspect]
     Active Substance: GABAPENTIN
     Indication: MOTOR DYSFUNCTION
  5. METOPROLOL. [Concomitant]
     Active Substance: METOPROLOL
     Indication: ATRIAL FIBRILLATION
     Dosage: 25 MG, QD
     Route: 048
     Dates: start: 201601
  6. LEVOTHYROXINE. [Concomitant]
     Active Substance: LEVOTHYROXINE
     Indication: THYROID CANCER
     Dosage: 100 ?G, QD
     Route: 048
     Dates: start: 2011
  7. GABAPENTIN. [Concomitant]
     Active Substance: GABAPENTIN
     Dosage: 300 MG, BID
     Route: 048
     Dates: start: 20160317

REACTIONS (4)
  - Product use issue [Unknown]
  - Drug ineffective for unapproved indication [Not Recovered/Not Resolved]
  - Nasopharyngitis [Recovered/Resolved]
  - Dizziness [Not Recovered/Not Resolved]

NARRATIVE: CASE EVENT DATE: 201603
